FAERS Safety Report 8563491-0 (Version None)
Quarter: 2012Q3

REPORT INFORMATION
  Report Type: 
  Country: None (occurrence: None)
  Receive Date: 20120802
  Receipt Date: 20120724
  Transmission Date: 20120928
  Serious: Yes (Death)
  Sender: FDA-Public Use
  Company Number: GB-TEVA-350269ISR

PATIENT
  Age: 83 Year
  Sex: Male

DRUGS (7)
  1. AMLODIPINE [Concomitant]
     Indication: HYPERTENSION
     Dates: end: 20120425
  2. TABPHYN MR [Concomitant]
     Indication: PROSTATE CANCER
     Dates: end: 20120425
  3. CYPROTERONE ACETATE [Concomitant]
     Indication: PROSTATE CANCER
     Dates: end: 20120425
  4. OMEPRAZOLE [Concomitant]
     Dates: end: 20120425
  5. SIMVASTATIN [Concomitant]
     Indication: CARDIOVASCULAR EVENT PROPHYLAXIS
     Dates: end: 20120425
  6. WARFARIN SODIUM [Suspect]
     Indication: ATRIAL FIBRILLATION
     Route: 048
     Dates: end: 20120425
  7. LEUPROLIDE ACETATE [Concomitant]
     Indication: PROSTATE CANCER
     Dates: end: 20120425

REACTIONS (3)
  - INTRACRANIAL PRESSURE INCREASED [None]
  - INTERNATIONAL NORMALISED RATIO INCREASED [None]
  - HAEMORRHAGE INTRACRANIAL [None]
